FAERS Safety Report 4331925-3 (Version None)
Quarter: 2004Q2

REPORT INFORMATION
  Report Type: 
  Country: None (occurrence: None)
  Receive Date: 20040405
  Receipt Date: 20030430
  Transmission Date: 20050107
  Serious: No
  Sender: FDA-Public Use
  Company Number: US-GLAXOSMITHKLINE-A0406846A

PATIENT
  Age: 79 Year
  Sex: Female

DRUGS (5)
  1. SEREVENT [Suspect]
     Indication: ASTHMA
     Dosage: 2PUFF TWICE PER DAY
     Route: 055
     Dates: start: 20011101, end: 20030101
  2. PULMICORT [Concomitant]
     Route: 065
  3. MAXZIDE [Concomitant]
     Route: 065
  4. ALTACE [Concomitant]
     Route: 065
  5. MULTIVITAMIN [Concomitant]
     Route: 065

REACTIONS (1)
  - HOARSENESS [None]
